FAERS Safety Report 8084138-6 (Version None)
Quarter: 2012Q1

REPORT INFORMATION
  Report Type: 
  Country: None (occurrence: None)
  Receive Date: 20120128
  Receipt Date: 20110208
  Transmission Date: 20120608
  Serious: No
  Sender: FDA-Public Use
  Company Number: US-ABBOTT-11P-163-0703595-00

PATIENT
  Age: 75 Year
  Sex: Female

DRUGS (10)
  1. NEURONTIN [Concomitant]
     Indication: NERVE INJURY
  2. ALLEGRA [Concomitant]
     Indication: HYPERSENSITIVITY
  3. TOPROL-XL [Concomitant]
     Indication: CARDIAC DISORDER
  4. PREDNISONE TAB [Concomitant]
     Indication: PRODUCT USED FOR UNKNOWN INDICATION
  5. FOLIC ACID [Concomitant]
     Indication: PRODUCT USED FOR UNKNOWN INDICATION
  6. PROLIA [Concomitant]
     Indication: OSTEOPOROSIS
  7. HUMIRA [Suspect]
     Indication: RHEUMATOID ARTHRITIS
     Dates: start: 20101201
  8. METHOTREXATE [Concomitant]
     Indication: PRODUCT USED FOR UNKNOWN INDICATION
     Dosage: 6 TABS WEEKLY, 2 ON MON, 2 WED, 2 ON FRI
  9. ASPIRIN [Concomitant]
     Indication: PRODUCT USED FOR UNKNOWN INDICATION
  10. RAMIPRIL [Concomitant]
     Indication: CARDIAC DISORDER

REACTIONS (4)
  - DYSPNOEA [None]
  - DRUG DOSE OMISSION [None]
  - ASTHENIA [None]
  - NASAL CONGESTION [None]
